FAERS Safety Report 6594348-2 (Version None)
Quarter: 2010Q1

REPORT INFORMATION
  Report Type: 
  Country: None (occurrence: None)
  Receive Date: 20100222
  Receipt Date: 20100209
  Transmission Date: 20100710
  Serious: Yes (Other)
  Sender: FDA-Public Use
  Company Number: CH-TYCO HEALTHCARE/MALLINCKRODT-T201000627

PATIENT
  Age: 35 Year
  Sex: Female
  Weight: 52 kg

DRUGS (14)
  1. FENTANYL-100 [Suspect]
     Indication: ANAESTHESIA
     Dosage: 150 ?G, UNK
  2. FENTANYL-100 [Suspect]
     Dosage: TOTAL 200 UG
  3. MORPHINE [Suspect]
     Indication: PAIN
     Dosage: 2 MG, UNK
  4. MISOPROSTOL [Suspect]
     Indication: PREOPERATIVE CARE
     Dosage: 200 ?G, UNK
     Route: 048
  5. MIDAZOLAM HCL [Suspect]
     Indication: PREOPERATIVE CARE
     Dosage: 7.5 MG, UNK
     Route: 048
  6. PROPOFOL [Suspect]
     Indication: ANAESTHESIA
     Dosage: 150 MG, UNK
  7. LIDOCAINE [Suspect]
     Indication: ANAESTHESIA
     Dosage: 50 MG, UNK
  8. ROCURONIUM BROMIDE [Suspect]
     Indication: ANAESTHESIA
     Dosage: 35 MG, UNK
  9. ROCURONIUM BROMIDE [Suspect]
     Dosage: TOTAL 20 MG
  10. SEVOFLURANE [Suspect]
     Indication: ANAESTHESIA
     Dosage: UNK
  11. CLINDAMYCIN [Suspect]
     Indication: PREOPERATIVE CARE
     Dosage: 600 MG, UNK
  12. KETOROLAC TROMETHAMINE [Suspect]
     Indication: INTRAOPERATIVE CARE
     Dosage: 30 MG, UNK
  13. PARACETAMOL [Suspect]
     Indication: PAIN
     Dosage: 1 G, UNK
  14. ST. JOHN'S WORT [Concomitant]
     Indication: DEPRESSION
     Dosage: UNK

REACTIONS (2)
  - DYSTONIA [None]
  - PARKINSONISM [None]
